FAERS Safety Report 8545368 (Version 2)
Quarter: 2013Q2

REPORT INFORMATION
  Report Type: Spontaneous
  Country: CA (occurrence: CA)
  Receive Date: 20120503
  Receipt Date: 20130401
  Transmission Date: 20140414
  Serious: Yes (Hospitalization, Other)
  Sender: FDA-Public Use
  Company Number: CA-JNJFOC-20120411489

PATIENT
  Sex: Female
  Weight: 108 kg

DRUGS (12)
  1. REMICADE [Suspect]
     Indication: CROHN^S DISEASE
     Route: 042
  2. REMICADE [Suspect]
     Indication: CROHN^S DISEASE
     Dosage: RECEIVED 48 INFUSIONS (DOSE OF 4 VIALS)
     Route: 042
     Dates: start: 20060612
  3. ACETYL SALICYLIC ACID [Concomitant]
     Route: 065
  4. PANTOPRAZOLE [Concomitant]
     Route: 065
  5. ROCALTROL [Concomitant]
     Route: 065
  6. HYDROXYZINE [Concomitant]
     Route: 065
  7. CITALOPRAM [Concomitant]
     Indication: ANTIDEPRESSANT THERAPY
     Route: 065
     Dates: start: 2012
  8. FUROSEMIDE [Concomitant]
     Indication: BLOOD PRESSURE
     Route: 065
  9. RAMIPRIL [Concomitant]
     Indication: BLOOD PRESSURE
     Route: 065
  10. BISOPROLOL [Concomitant]
     Indication: BLOOD PRESSURE
     Route: 065
  11. SPIRIVA [Concomitant]
     Indication: ASTHMA
     Route: 065
  12. ADVAIR [Concomitant]
     Indication: ASTHMA
     Dosage: DOSE 4 SQUIRTS DAILY
     Route: 065

REACTIONS (8)
  - Angina pectoris [Unknown]
  - Pericarditis [Unknown]
  - Cervical spinal stenosis [Unknown]
  - Sciatica [Unknown]
  - Carpal tunnel syndrome [Unknown]
  - Intestinal obstruction [Unknown]
  - Condition aggravated [Unknown]
  - Weight increased [Unknown]
